APPROVED DRUG PRODUCT: RYBELSUS
Active Ingredient: SEMAGLUTIDE
Strength: 3MG
Dosage Form/Route: TABLET;ORAL
Application: N213051 | Product #001
Applicant: NOVO NORDISK INC
Approved: Sep 20, 2019 | RLD: Yes | RS: Yes | Type: RX

PATENTS:
Patent 8536122 | Expires: Mar 20, 2026
Patent 9278123 | Expires: Dec 16, 2031
Patent 8129343 | Expires: Dec 5, 2031
Patent 10278923 | Expires: May 2, 2034
Patent 12514822 | Expires: May 2, 2034
Patent 12239739 | Expires: May 2, 2034
Patent 10960052 | Expires: Dec 16, 2031
Patent 11759503 | Expires: Mar 15, 2033
Patent 10933120 | Expires: Mar 15, 2033
Patent 10086047 | Expires: Dec 16, 2031
Patent 11382957 | Expires: Dec 16, 2031
Patent 11759501 | Expires: Mar 15, 2033
Patent 11759502 | Expires: Mar 15, 2033

EXCLUSIVITY:
Code: I-976 | Date: Oct 17, 2028